FAERS Safety Report 8380516-6 (Version None)
Quarter: 2012Q2

REPORT INFORMATION
  Report Type: 
  Country: None (occurrence: None)
  Receive Date: 20120523
  Receipt Date: 20120514
  Transmission Date: 20120825
  Serious: Yes (Other)
  Sender: FDA-Public Use
  Company Number: US-ASTRAZENECA-2011SE76604

PATIENT
  Age: 55 Year
  Sex: Female

DRUGS (1)
  1. CRESTOR [Suspect]
     Route: 048

REACTIONS (5)
  - VOCAL CORD DISORDER [None]
  - HEADACHE [None]
  - BLOOD CHOLESTEROL INCREASED [None]
  - CRANIOCEREBRAL INJURY [None]
  - ACCIDENT [None]
